FAERS Safety Report 9713975 (Version 1)
Quarter: 2013Q4

REPORT INFORMATION
  Report Type: Spontaneous
  Country: US (occurrence: US)
  Receive Date: 20131126
  Receipt Date: 20131126
  Transmission Date: 20140711
  Serious: No
  Sender: FDA-Public Use
  Company Number: US-GILEAD-2008-0018436

PATIENT
  Age: 70 Year
  Sex: Female

DRUGS (9)
  1. LETAIRIS [Suspect]
     Indication: COR PULMONALE CHRONIC
     Route: 048
     Dates: start: 20080621
  2. LETAIRIS [Suspect]
     Indication: SYSTEMIC SCLEROSIS
  3. AZATHIOPRINE [Concomitant]
  4. ATENOLOL [Concomitant]
  5. SPIRONOLACTONE [Concomitant]
  6. SIMVASTATIN [Concomitant]
  7. TYLENOL PM [Concomitant]
  8. ALEVE [Concomitant]
  9. ADVAIR [Concomitant]

REACTIONS (1)
  - Local swelling [None]
